FAERS Safety Report 24046262 (Version 1)
Quarter: 2024Q3

REPORT INFORMATION
  Report Type: Spontaneous
  Country: US (occurrence: None)
  Receive Date: 20240703
  Receipt Date: 20240703
  Transmission Date: 20241017
  Serious: Yes (Hospitalization)
  Sender: Public
  Company Number: None

PATIENT
  Sex: Male
  Weight: 76 kg

DRUGS (4)
  1. DARATUMUMAB\HYALURONIDASE-FIHJ [Suspect]
     Active Substance: DARATUMUMAB\HYALURONIDASE-FIHJ
     Dates: end: 20240405
  2. DEXAMETHASONE [Suspect]
     Active Substance: DEXAMETHASONE
     Dates: end: 20240405
  3. LENALIDOMIDE [Suspect]
     Active Substance: LENALIDOMIDE
     Dates: end: 20240424
  4. BORTEZOMIB [Suspect]
     Active Substance: BORTEZOMIB
     Dates: end: 20240405

REACTIONS (10)
  - Leukocytosis [None]
  - Blood culture positive [None]
  - Viral test positive [None]
  - Staphylococcus test positive [None]
  - Fatigue [None]
  - Polyuria [None]
  - Endocarditis [None]
  - Haematuria [None]
  - Bacteraemia [None]
  - Urinary tract infection [None]

NARRATIVE: CASE EVENT DATE: 20240427
